FAERS Safety Report 20703583 (Version 1)
Quarter: 2022Q2

REPORT INFORMATION
  Report Type: Spontaneous
  Country: CN (occurrence: CN)
  Receive Date: 20220413
  Receipt Date: 20220413
  Transmission Date: 20220721
  Serious: Yes (Other)
  Sender: FDA-Public Use
  Company Number: CN-JNJFOC-20220415690

PATIENT
  Age: 8 Year

DRUGS (1)
  1. CONCERTA [Suspect]
     Active Substance: METHYLPHENIDATE HYDROCHLORIDE
     Indication: Attention deficit hyperactivity disorder
     Dosage: (CONCERTA,18 MG*15)
     Route: 048
     Dates: start: 2021, end: 2022

REACTIONS (2)
  - Growth retardation [Unknown]
  - Decreased appetite [Recovered/Resolved]
